FAERS Safety Report 10359154 (Version 1)
Quarter: 2014Q3

REPORT INFORMATION
  Report Type: Spontaneous
  Country: US (occurrence: None)
  Receive Date: 20140731
  Receipt Date: 20140731
  Transmission Date: 20150326
  Serious: Yes (Hospitalization)
  Sender: FDA-Public Use
  Company Number: None

PATIENT
  Age: 66 Year
  Sex: Female
  Weight: 66.4 kg

DRUGS (2)
  1. HESPAN [Suspect]
     Active Substance: HETASTARCH\SODIUM CHLORIDE
     Route: 041
     Dates: start: 20140117, end: 20140118
  2. HEPARIN [Suspect]
     Active Substance: HEPARIN SODIUM
     Indication: THROMBOSIS PROPHYLAXIS
     Dosage: 1,150 UNITS, CONTINUOUS, INTRAVENOUS DRIP
     Route: 041

REACTIONS (2)
  - Product packaging confusion [None]
  - Wrong drug administered [None]

NARRATIVE: CASE EVENT DATE: 20140117
